FAERS Safety Report 6934869-3 (Version None)
Quarter: 2010Q3

REPORT INFORMATION
  Report Type: 
  Country: None (occurrence: None)
  Receive Date: 20100821
  Receipt Date: 20100806
  Transmission Date: 20110219
  Serious: Yes (Hospitalization, Other)
  Sender: FDA-Public Use
  Company Number: PHHY2010US40497

PATIENT
  Sex: Female
  Weight: 56 kg

DRUGS (6)
  1. EXJADE [Suspect]
     Indication: IRON OVERLOAD
     Dosage: 2500 MG, UNK
     Route: 048
     Dates: start: 20070101
  2. EXJADE [Suspect]
     Indication: SICKLE CELL ANAEMIA
     Dosage: 3000 MG, QD
     Route: 048
     Dates: start: 20100422, end: 20100616
  3. OXYCONTIN [Concomitant]
     Indication: SICKLE CELL ANAEMIA WITH CRISIS
     Dosage: 320 MG, UNK
     Dates: start: 20040101
  4. OXYCONTIN [Concomitant]
     Indication: PAIN
  5. FOLIC ACID [Concomitant]
     Indication: SICKLE CELL ANAEMIA
     Dosage: 1 MG, QD
  6. HYDREA [Concomitant]
     Indication: SICKLE CELL ANAEMIA
     Dosage: 150 MG, BID
     Dates: start: 20040101

REACTIONS (3)
  - BONE MARROW FAILURE [None]
  - SERUM FERRITIN INCREASED [None]
  - THROMBOCYTOPENIA [None]
